FAERS Safety Report 5763895-5 (Version None)
Quarter: 2008Q2

REPORT INFORMATION
  Report Type: 
  Country: None (occurrence: None)
  Receive Date: 20080606
  Receipt Date: 20080606
  Transmission Date: 20081010
  Serious: Yes (Other)
  Sender: FDA-Public Use
  Company Number: None

PATIENT
  Sex: Male
  Weight: 87.78 kg

DRUGS (1)
  1. RITUXAN [Suspect]
     Dosage: 75ML/HR

REACTIONS (1)
  - INFUSION RELATED REACTION [None]
